FAERS Safety Report 8916014 (Version 2)
Quarter: 2012Q4

REPORT INFORMATION
  Report Type: 
  Country: US (occurrence: US)
  Receive Date: 20121119
  Receipt Date: 20121206
  Transmission Date: 20130627
  Serious: Yes (Death)
  Sender: FDA-Public Use
  Company Number: PHEH2012US022565

PATIENT
  Age: 70 Year
  Sex: Female
  Weight: 43.2 kg

DRUGS (6)
  1. AFINITOR [Suspect]
     Indication: NEUROENDOCRINE CARCINOMA
     Dosage: 10 mg, QOD
     Route: 048
     Dates: start: 20120307, end: 20120818
  2. FERROUS SULFATE [Concomitant]
     Indication: IRON DEFICIENCY
     Dosage: 325 mg, QD
     Route: 048
  3. LASIX [Concomitant]
     Indication: SWELLING
     Dosage: 40 mg, UNK
     Route: 048
  4. METOPROLOL [Concomitant]
     Indication: HYPERTENSION
     Dosage: 100 mg, QD
     Route: 048
  5. POTASSIUM CHLORIDE [Concomitant]
     Indication: HYPOKALAEMIA
     Dosage: 10 mg, UNK
     Route: 048
  6. PRILOSEC [Concomitant]
     Indication: NEUROENDOCRINE CARCINOMA
     Dosage: 20 mg, QD
     Route: 048

REACTIONS (3)
  - Death [Fatal]
  - Vomiting [Recovered/Resolved]
  - Nausea [Recovered/Resolved]
